FAERS Safety Report 5370610-6 (Version None)
Quarter: 2007Q2

REPORT INFORMATION
  Report Type: 
  Country: None (occurrence: None)
  Receive Date: 20070626
  Receipt Date: 20070620
  Transmission Date: 20071010
  Serious: Yes (Hospitalization)
  Sender: FDA-Public Use
  Company Number: JP-ASTRAZENECA-2007AP03472

PATIENT
  Age: 27934 Day
  Sex: Male
  Weight: 68 kg

DRUGS (13)
  1. TENORMIN [Suspect]
     Indication: HYPERTENSION
     Route: 048
     Dates: start: 20070123, end: 20070514
  2. TENORMIN [Suspect]
     Route: 048
     Dates: start: 20070515, end: 20070528
  3. GLIMICRON [Concomitant]
     Indication: DIABETES MELLITUS
     Route: 048
     Dates: start: 20060104
  4. MICARDIS [Concomitant]
     Indication: HYPERTENSION
     Route: 048
     Dates: start: 20050207, end: 20061226
  5. MICARDIS [Concomitant]
     Route: 048
     Dates: start: 20061227, end: 20070528
  6. NORVASC [Concomitant]
     Indication: HYPERTENSION
     Route: 048
     Dates: start: 20040608, end: 20070528
  7. NITOROL [Concomitant]
     Indication: ANGINA PECTORIS
     Route: 048
     Dates: start: 20060321
  8. CARDENALIN [Concomitant]
     Indication: HYPERTENSION
     Route: 048
     Dates: start: 20060321, end: 20070528
  9. LOXONIN [Concomitant]
     Indication: BACK PAIN
     Route: 048
     Dates: start: 20060321, end: 20070523
  10. MUCOSTA [Concomitant]
     Indication: GASTRITIS
     Route: 048
     Dates: start: 20060321, end: 20070523
  11. MAGMITT [Concomitant]
     Indication: CONSTIPATION
     Route: 048
     Dates: start: 20060321
  12. TAKEPRON [Concomitant]
     Indication: DUODENAL ULCER
     Route: 048
     Dates: start: 20070523
  13. RENIVACE [Concomitant]
     Indication: HYPERTENSION
     Route: 048
     Dates: end: 20061226

REACTIONS (5)
  - BLOOD CREATININE INCREASED [None]
  - BLOOD POTASSIUM INCREASED [None]
  - BLOOD PRESSURE DECREASED [None]
  - BRADYCARDIA [None]
  - DUODENAL ULCER [None]
